FAERS Safety Report 4377654-1 (Version None)
Quarter: 2004Q2

REPORT INFORMATION
  Report Type: 
  Country: None (occurrence: None)
  Receive Date: 20040601
  Receipt Date: 20040218
  Transmission Date: 20050107
  Serious: No
  Sender: FDA-Public Use
  Company Number: WAES 0401USA01054

PATIENT
  Sex: Female
  Weight: 65.7716 kg

DRUGS (4)
  1. ZETIA [Suspect]
     Indication: BLOOD CHOLESTEROL INCREASED
     Dosage: 10 MG/DAILY/PO
     Route: 048
  2. ZETIA [Suspect]
     Indication: HYPERLIPIDAEMIA
     Dosage: 10 MG/DAILY/PO
     Route: 048
  3. CALAN [Concomitant]
  4. DYAZIDE [Concomitant]

REACTIONS (3)
  - BACK DISORDER [None]
  - BACK PAIN [None]
  - DRUG HYPERSENSITIVITY [None]
